FAERS Safety Report 4527872-4 (Version None)
Quarter: 2004Q4

REPORT INFORMATION
  Report Type: 
  Country: None (occurrence: None)
  Receive Date: 20041123
  Receipt Date: 20031222
  Transmission Date: 20050328
  Serious: Yes (Other)
  Sender: FDA-Public Use
  Company Number: HQWYE890023DEC03

PATIENT
  Age: 91 Year
  Sex: Female

DRUGS (8)
  1. ZOSYN [Suspect]
     Indication: PNEUMONIA
     Dosage: 4.5 G 4X PER 1 DAY, INTRAVENOUS
     Route: 042
     Dates: start: 20031205, end: 20031221
  2. DIGOXIN [Concomitant]
  3. NORVASC [Concomitant]
  4. LOPRESSOR [Concomitant]
  5. DIOVAN [Concomitant]
  6. CARDURA [Concomitant]
  7. LANTUS [Concomitant]
  8. HUMALOG [Concomitant]

REACTIONS (1)
  - DEAFNESS [None]
